FAERS Safety Report 9607402 (Version 2)
Quarter: 2013Q4

REPORT INFORMATION
  Report Type: Spontaneous
  Country: US (occurrence: None)
  Receive Date: 20131007
  Receipt Date: 20131125
  Transmission Date: 20140711
  Serious: Yes (Other)
  Sender: FDA-Public Use
  Company Number: AUR-APL-2013-08213

PATIENT
  Age: 52 Year
  Sex: Female
  Weight: 89 kg

DRUGS (16)
  1. AMLODIPINE (AMLODIPINE) [Suspect]
     Indication: HYPERTENSION
     Dosage: (10 MG), UNKNOWN
  2. LOSARTAN (LOSARTAN) [Suspect]
     Dosage: (25 MG), UNKNOWN
  3. METFORMIN (METFORMIN) [Suspect]
     Dosage: (1000 MG), UNKNOWN
  4. VENLAFAXINE (VENLAFAXINE) [Suspect]
     Dosage: 150 MG QD.
  5. VENLAFAXINE (VENLAFAXINE) [Suspect]
     Dosage: 150 MG QD.
  6. CLONIDINE (CLONIDINE) [Suspect]
     Dosage: 0.1 MG
  7. EFFEXOR XR (VENLAFAXINE HYDROCHLORIDE) (75 MILLIGRAM, CAPSULE) (VENLAFAXINE HYDROCHLORIDE) [Suspect]
     Dosage: 150 MG
  8. EFFEXOR XR (VENLAFAXINE HYDROCHLORIDE) (75 MILLIGRAM, CAPSULE) (VENLAFAXINE HYDROCHLORIDE) [Suspect]
     Dosage: 150 MG
  9. LASIX (FUROSEMIDE) [Concomitant]
  10. OMEPRAZOLE (OMEPRAZOLE) [Concomitant]
  11. FENOFIBRATE (FENOFIBRATE) (FENOFIBRATE) [Concomitant]
  12. PROMETHAZINE (PROMETHAZINE) [Concomitant]
  13. RANITIDINE HYDROCHLORIDE (RANITIDINE HYDROCHLORIDE) [Concomitant]
  14. KLOR-CON (POTASSIUM CHLORIDE) [Concomitant]
  15. LATUDA (LURASIDONE HYDROCHLORIDE) [Concomitant]
  16. METOCLOPRAMIDE (METOCLOPRAMIDE) [Concomitant]

REACTIONS (4)
  - Blood pressure increased [None]
  - Blood glucose increased [None]
  - Anxiety [None]
  - Palpitations [None]
